FAERS Safety Report 6330258-3 (Version None)
Quarter: 2009Q3

REPORT INFORMATION
  Report Type: 
  Country: None (occurrence: None)
  Receive Date: 20090827
  Receipt Date: 20090603
  Transmission Date: 20100115
  Serious: No
  Sender: FDA-Public Use
  Company Number: US-KINGPHARMUSA00001-K200900669

PATIENT
  Age: 57 Year
  Sex: Female
  Weight: 70.295 kg

DRUGS (13)
  1. FLECTOR [Suspect]
     Indication: ARTHRALGIA
     Dosage: UNK
     Route: 061
     Dates: start: 20090526, end: 20090527
  2. ALLEGRA [Concomitant]
     Dosage: UNK
     Route: 048
  3. CELEXA [Concomitant]
     Indication: DEPRESSION
     Dosage: UNK
     Route: 048
  4. CELEBREX [Concomitant]
     Dosage: UNK
     Route: 048
  5. LYRICA [Concomitant]
     Indication: DEPRESSION
     Dosage: UNK
     Route: 048
  6. TRAZODONE HCL [Concomitant]
     Dosage: UNK
     Route: 048
  7. IMITREX [Concomitant]
     Indication: MIGRAINE
     Dosage: UNK
     Route: 048
  8. PREVACID [Concomitant]
     Indication: ULCER
     Dosage: UNK
     Route: 048
  9. ROBAXIN [Concomitant]
     Dosage: UNK
     Route: 048
  10. VALIUM [Concomitant]
     Dosage: UNK
     Route: 048
  11. VICODIN [Concomitant]
     Dosage: UNK
     Route: 048
  12. LIDOCAINE [Concomitant]
     Indication: NECK PAIN
     Dosage: UNK
     Route: 058
  13. THYROID THERAPY [Concomitant]
     Dosage: UNK

REACTIONS (5)
  - DIARRHOEA [None]
  - INFLUENZA LIKE ILLNESS [None]
  - MIGRAINE [None]
  - MYALGIA [None]
  - SLEEP DISORDER [None]
